FAERS Safety Report 8487015-1 (Version None)
Quarter: 2012Q3

REPORT INFORMATION
  Report Type: 
  Country: None (occurrence: None)
  Receive Date: 20120704
  Receipt Date: 20120629
  Transmission Date: 20120928
  Serious: Yes (Other)
  Sender: FDA-Public Use
  Company Number: PHHY2012DE056943

PATIENT
  Sex: Female

DRUGS (2)
  1. FAMPRIDINE [Concomitant]
     Indication: MULTIPLE SCLEROSIS
     Dosage: 10 MG, QD
     Route: 048
     Dates: start: 20120209
  2. GILENYA [Suspect]
     Dosage: 0.5 MG, QD
     Route: 048
     Dates: start: 20120427, end: 20120628

REACTIONS (4)
  - DIZZINESS [None]
  - PALPITATIONS [None]
  - ORAL PUSTULE [None]
  - ASTHENIA [None]
